FAERS Safety Report 4439011-9 (Version None)
Quarter: 2004Q3

REPORT INFORMATION
  Report Type: 
  Country: None (occurrence: None)
  Receive Date: 20040901
  Receipt Date: 20040715
  Transmission Date: 20050211
  Serious: Yes (Death, Life-Threatening, Hospitalization)
  Sender: FDA-Public Use
  Company Number: JP-MERCK-0407USA01661

PATIENT
  Age: 45 Year
  Sex: Male

DRUGS (5)
  1. ZYLORIC [Concomitant]
     Route: 048
     Dates: start: 20031020, end: 20040621
  2. URALYT [Concomitant]
     Route: 048
     Dates: start: 20030916, end: 20040621
  3. URINORM [Concomitant]
     Route: 048
     Dates: start: 20030916, end: 20040621
  4. PEPCID RPD [Suspect]
     Indication: REFLUX OESOPHAGITIS
     Route: 048
     Dates: start: 20040621, end: 20040714
  5. RIZABEN [Concomitant]
     Route: 048
     Dates: start: 20040507, end: 20040705

REACTIONS (3)
  - ACUTE MYELOID LEUKAEMIA [None]
  - PNEUMONIA [None]
  - PSEUDOMONAS INFECTION [None]
